FAERS Safety Report 9131943 (Version 1)
Quarter: 2013Q1

REPORT INFORMATION
  Report Type: Report from Study
  Country: US (occurrence: US)
  Receive Date: 20130301
  Receipt Date: 20130301
  Transmission Date: 20140127
  Serious: No
  Sender: FDA-Public Use
  Company Number: US-MYLANLABS-2012S1022874

PATIENT
  Age: 56 Year
  Sex: Male
  Weight: 85.28 kg

DRUGS (5)
  1. AMNESTEEM CAPSULES [Suspect]
     Indication: ACNE
     Route: 048
     Dates: start: 20120517, end: 20121004
  2. ADIPEX /00131701/ [Concomitant]
  3. COREG [Concomitant]
  4. HCTZ [Concomitant]
  5. OTHER MINERAL SUPPLEMENTS [Concomitant]

REACTIONS (3)
  - Alanine aminotransferase increased [Recovered/Resolved]
  - Aspartate aminotransferase increased [Recovered/Resolved]
  - Blood alkaline phosphatase increased [Not Recovered/Not Resolved]
